FAERS Safety Report 11875123 (Version 1)
Quarter: 2015Q4

REPORT INFORMATION
  Report Type: Spontaneous
  Country: US (occurrence: None)
  Receive Date: 20151228
  Receipt Date: 20151228
  Transmission Date: 20160305
  Serious: No
  Sender: FDA-Public Use
  Company Number: None

PATIENT

DRUGS (1)
  1. NOREPINEPHRINE\NOREPINEPHRINE BITARTRATE [Suspect]
     Active Substance: NOREPINEPHRINE\NOREPINEPHRINE BITARTRATE
     Indication: BLOOD PRESSURE MANAGEMENT
     Dates: start: 20151224, end: 20151225

REACTIONS (1)
  - Product colour issue [None]

NARRATIVE: CASE EVENT DATE: 20151225
